FAERS Safety Report 6411150-2 (Version None)
Quarter: 2009Q4

REPORT INFORMATION
  Report Type: 
  Country: None (occurrence: None)
  Receive Date: 20091019
  Receipt Date: 20091012
  Transmission Date: 20100525
  Serious: Yes (Death, Hospitalization)
  Sender: FDA-Public Use
  Company Number: 2007SP023031

PATIENT
  Sex: Male

DRUGS (2)
  1. TEMOZOLOMIDE [Suspect]
     Indication: GLIOBLASTOMA
     Dosage: 200 MG/M2; BID;
     Dates: start: 20051006, end: 20060306
  2. DOXORUBICIN HCL [Suspect]
     Indication: GLIOBLASTOMA
     Dosage: 20 MG/M2;
     Dates: start: 20050923, end: 20060301

REACTIONS (5)
  - INTRACRANIAL PRESSURE INCREASED [None]
  - NERVOUS SYSTEM DISORDER [None]
  - PLEURAL EFFUSION [None]
  - PNEUMONIA [None]
  - PNEUMOTHORAX [None]
